FAERS Safety Report 8906285 (Version 1)
Quarter: 2012Q4

REPORT INFORMATION
  Report Type: Spontaneous
  Country: US (occurrence: None)
  Receive Date: 20121112
  Receipt Date: 20121112
  Transmission Date: 20130627
  Serious: Yes (Other)
  Sender: FDA-Public Use
  Company Number: None

PATIENT
  Age: 79 Year
  Sex: Male
  Weight: 78.93 kg

DRUGS (1)
  1. PROVENGE [Suspect]
     Indication: PROSTATE CANCER METASTATIC
     Dates: start: 20121109, end: 20121109

REACTIONS (6)
  - Chest pain [None]
  - Headache [None]
  - Oxygen saturation decreased [None]
  - Nausea [None]
  - Chills [None]
  - Vomiting [None]
